FAERS Safety Report 9170894 (Version 1)
Quarter: 2013Q1

REPORT INFORMATION
  Report Type: Spontaneous
  Country: CH (occurrence: None)
  Receive Date: 20130311
  Receipt Date: 20130311
  Transmission Date: 20140127
  Serious: Yes (Hospitalization)
  Sender: FDA-Public Use
  Company Number: SYM-2013-01448

PATIENT
  Age: 91 Year
  Sex: Female

DRUGS (11)
  1. DILTIAZEM (DILTIAZEM) (UNKNOWN) (DILTIAZEM) [Suspect]
     Indication: ATRIAL FIBRILLATION
     Route: 048
     Dates: end: 20121214
  2. DIGOXIN (DIGOXIN) (UNKNOWN) (DIGOXIN) [Concomitant]
     Indication: ATRIAL FIBRILLATION
     Route: 048
     Dates: start: 20121207, end: 20130104
  3. SINTROM (ACENOCOUMAROL) (UNKNOWN) (ACENOCOUMAROL) [Concomitant]
  4. BELOC (METOPROLOL TARTRATE) (UNKNOWN) (METOPROLOL TARTRATE) [Concomitant]
  5. LISINOPRIL (LISINOPRIL) (UNKNOWN) (LISINOPRIL) [Concomitant]
  6. TORASEMIDE (TORASEMIDE) (UNKNOWN) (TORASEMIDE) [Concomitant]
  7. ANASTROZOLE (ANASTROZOLE) (UNKNOWN) (ANASTROZOLE) [Concomitant]
  8. TEMESTA (LORAZEPAM) (UNKNOWN) (LORAZEPAM) [Concomitant]
  9. BONIVA (IBANDRONATE SODIUM) (UNKNOWN) (IBANDRONATE SODIUM) [Concomitant]
  10. CALCIUM SANDOZ FORTE D (CALCIUM SANDOZ FORTE D (UNKNOWN) (COLECALCIFEROL, CALCIUM CARBONATE, CALCIUM GLUCEPTATE) [Concomitant]
  11. FOLIC ACID (FOLIC ACID) (UNKNOWN) (FOLIC ACID) [Concomitant]

REACTIONS (14)
  - Vomiting [None]
  - Weight decreased [None]
  - Vision blurred [None]
  - Chromatopsia [None]
  - Hallucination [None]
  - Loss of proprioception [None]
  - Cataract [None]
  - Macular degeneration [None]
  - Dysphagia [None]
  - Drug level increased [None]
  - Toxicity to various agents [None]
  - Drug prescribing error [None]
  - Overdose [None]
  - Drug interaction [None]
